FAERS Safety Report 4296378-2 (Version None)
Quarter: 2004Q1

REPORT INFORMATION
  Report Type: 
  Country: None (occurrence: None)
  Receive Date: 20040213
  Receipt Date: 20040213
  Transmission Date: 20041129
  Serious: Yes (Hospitalization)
  Sender: FDA-Public Use
  Company Number: None

PATIENT
  Sex: Male
  Weight: 70.3075 kg

DRUGS (4)
  1. DIGOXIN [Suspect]
     Indication: ATRIAL FIBRILLATION
     Dosage: 0.25 MG PO QD [ PRIOR TO ADMISSION]
     Route: 048
  2. ZESTRIL [Concomitant]
  3. ATENOLOL [Concomitant]
  4. COUMADIN [Concomitant]

REACTIONS (2)
  - CARDIOACTIVE DRUG LEVEL INCREASED [None]
  - HEART RATE DECREASED [None]
